FAERS Safety Report 24321987 (Version 9)
Quarter: 2025Q4

REPORT INFORMATION
  Report Type: Spontaneous
  Country: US (occurrence: US)
  Receive Date: 20240916
  Receipt Date: 20251210
  Transmission Date: 20260117
  Serious: No
  Sender: BRISTOL-MYERS SQUIBB COMPANY
  Company Number: US-BRISTOL-MYERS SQUIBB COMPANY-2024-146298

PATIENT
  Age: 66 Year
  Sex: Female

DRUGS (2)
  1. REVLIMID [Suspect]
     Active Substance: LENALIDOMIDE
     Indication: Plasma cell myeloma
     Route: 048
  2. REVLIMID [Suspect]
     Active Substance: LENALIDOMIDE
     Route: 048

REACTIONS (16)
  - Peripheral swelling [Unknown]
  - Eye pain [Unknown]
  - Blepharospasm [Unknown]
  - Upper respiratory tract infection [Unknown]
  - Respiratory tract infection [Unknown]
  - Inappropriate schedule of product administration [Unknown]
  - Viral infection [Unknown]
  - Chromaturia [Unknown]
  - Urine abnormality [Unknown]
  - Dizziness [Unknown]
  - Insomnia [Not Recovered/Not Resolved]
  - Brain fog [Not Recovered/Not Resolved]
  - Nasopharyngitis [Recovered/Resolved with Sequelae]
  - Cough [Recovered/Resolved with Sequelae]
  - Headache [Recovered/Resolved with Sequelae]
  - Constipation [Unknown]

NARRATIVE: CASE EVENT DATE: 20240910
